FAERS Safety Report 16016014 (Version 1)
Quarter: 2019Q1

REPORT INFORMATION
  Report Type: Spontaneous
  Country: SE (occurrence: SE)
  Receive Date: 20190228
  Receipt Date: 20190228
  Transmission Date: 20190418
  Serious: Yes (Hospitalization)
  Sender: FDA-Public Use
  Company Number: SE-ACCORD-109538

PATIENT
  Age: 46 Year
  Sex: Male

DRUGS (2)
  1. TROMBYL [Concomitant]
     Active Substance: ASPIRIN
     Dates: start: 20180714
  2. ATORVASTATIN/ATORVASTATIN CALCIUM [Suspect]
     Active Substance: ATORVASTATIN CALCIUM
     Indication: CEREBROVASCULAR ACCIDENT PROPHYLAXIS
     Dosage: 20MG 1X1
     Route: 048
     Dates: start: 20180714

REACTIONS (2)
  - Off label use [Unknown]
  - Amaurosis fugax [Recovered/Resolved]

NARRATIVE: CASE EVENT DATE: 20180723
